FAERS Safety Report 6525262-6 (Version None)
Quarter: 2010Q1

REPORT INFORMATION
  Report Type: 
  Country: None (occurrence: None)
  Receive Date: 20100104
  Receipt Date: 20091222
  Transmission Date: 20100710
  Serious: Yes (Life-Threatening, Hospitalization)
  Sender: FDA-Public Use
  Company Number: JP-PFIZER INC-2009314462

PATIENT
  Age: 43 Year
  Sex: Female

DRUGS (4)
  1. SUNITINIB MALATE [Suspect]
     Indication: RENAL CELL CARCINOMA
     Dosage: 37.5 MG, 1X/DAY, TDD 37.5 MG
     Route: 048
  2. HYPEN [Concomitant]
     Dosage: UNK
     Route: 048
  3. GASTER [Concomitant]
     Dosage: UNK
     Route: 048
  4. RESPLEN [Concomitant]
     Dosage: UNK
     Route: 048
     Dates: end: 20090628

REACTIONS (2)
  - NAUSEA [None]
  - PLATELET COUNT DECREASED [None]
